FAERS Safety Report 5879952-9 (Version None)
Quarter: 2008Q3

REPORT INFORMATION
  Report Type: 
  Country: None (occurrence: None)
  Receive Date: 20080912
  Receipt Date: 20080901
  Transmission Date: 20090109
  Serious: Yes (Other)
  Sender: FDA-Public Use
  Company Number: FI-PFIZER INC-2007088081

PATIENT
  Sex: Female
  Weight: 82 kg

DRUGS (7)
  1. LYRICA [Suspect]
     Indication: INTERVERTEBRAL DISC PROTRUSION
     Dosage: DAILY DOSE:225MG
     Route: 048
     Dates: start: 20070101, end: 20070419
  2. LYRICA [Interacting]
     Indication: PAIN
  3. VENLAFAXINE HYDROCHLORIDE [Interacting]
     Indication: ANXIETY
     Dosage: DAILY DOSE:75MG
     Dates: start: 20060101, end: 20070101
  4. TRAMAL [Concomitant]
     Indication: PAIN
     Dates: start: 20070101, end: 20070513
  5. TRAMAL [Concomitant]
     Indication: INTERVERTEBRAL DISC PROTRUSION
  6. YASMIN [Concomitant]
     Indication: DYSMENORRHOEA
  7. YASMIN [Concomitant]
     Indication: CONTRACEPTION

REACTIONS (17)
  - ANXIETY [None]
  - CONDITION AGGRAVATED [None]
  - DIARRHOEA [None]
  - DRUG INTERACTION [None]
  - FEELING COLD [None]
  - FEELING HOT [None]
  - HALLUCINATION [None]
  - HYPERHIDROSIS [None]
  - INSOMNIA [None]
  - MIGRAINE [None]
  - PALPITATIONS [None]
  - PANIC REACTION [None]
  - PSYCHOMOTOR HYPERACTIVITY [None]
  - SENSORY DISTURBANCE [None]
  - VOMITING [None]
  - WEIGHT DECREASED [None]
  - WITHDRAWAL SYNDROME [None]
